FAERS Safety Report 20842986 (Version 1)
Quarter: 2022Q2

REPORT INFORMATION
  Report Type: Spontaneous
  Country: IN (occurrence: IN)
  Receive Date: 20220518
  Receipt Date: 20220518
  Transmission Date: 20220721
  Serious: Yes (Death, Other)
  Sender: FDA-Public Use
  Company Number: IN-AMGEN-INDSP2022081017

PATIENT

DRUGS (1)
  1. XGEVA [Suspect]
     Active Substance: DENOSUMAB
     Indication: Metastases to bone
     Dosage: UNK
     Route: 065

REACTIONS (30)
  - Death [Fatal]
  - Spinal cord compression [Unknown]
  - Septic shock [Unknown]
  - Neutropenia [Unknown]
  - Unevaluable event [Unknown]
  - Mediastinal disorder [Unknown]
  - Urinary tract disorder [Unknown]
  - Renal disorder [Unknown]
  - Metabolic disorder [Unknown]
  - Malnutrition [Unknown]
  - Nervous system disorder [Unknown]
  - Respiratory disorder [Unknown]
  - Chest pain [Unknown]
  - Injection site erythema [Unknown]
  - Urinary tract infection [Unknown]
  - Adverse drug reaction [Unknown]
  - Blood disorder [Unknown]
  - Lymphatic disorder [Unknown]
  - Investigation abnormal [Unknown]
  - Skin disorder [Unknown]
  - Gastrointestinal disorder [Unknown]
  - Musculoskeletal disorder [Unknown]
  - Connective tissue disorder [Unknown]
  - Tooth abscess [Unknown]
  - Infection [Unknown]
  - Infestation [Unknown]
  - Anaemia [Unknown]
  - Asthenia [Unknown]
  - Administration site reaction [Unknown]
  - General symptom [Unknown]
